FAERS Safety Report 6312340-X (Version None)
Quarter: 2009Q3

REPORT INFORMATION
  Report Type: 
  Country: None (occurrence: None)
  Receive Date: 20090817
  Receipt Date: 20090807
  Transmission Date: 20100115
  Serious: Yes (Other)
  Sender: FDA-Public Use
  Company Number: PHHY2009FI08745

PATIENT
  Sex: Male

DRUGS (10)
  1. GLEEVEC [Suspect]
     Indication: CHRONIC MYELOID LEUKAEMIA
     Dosage: 400 MG DAILY
     Route: 048
     Dates: start: 20031220
  2. GLEEVEC [Suspect]
     Dosage: 300 MG, BID
     Route: 048
     Dates: start: 20050101
  3. GLEEVEC [Suspect]
     Dosage: 400 MG, QD
     Dates: start: 20090301, end: 20090421
  4. DASATINIB [Suspect]
     Dosage: 50 MG, QD
     Dates: end: 20090626
  5. RENITEC COMP. [Concomitant]
     Indication: HYPERTONIA
     Dosage: 1 TABLET DAILY
     Route: 048
     Dates: end: 20090626
  6. EMGESAN [Concomitant]
     Indication: MUSCLE SPASMS
     Dosage: 3 TABLETS DAILY
     Route: 048
     Dates: start: 20060101
  7. BURANA [Concomitant]
     Indication: PAIN
     Dosage: 600 MG
  8. PARACETAMOL [Concomitant]
     Indication: PAIN
  9. KALCIPOS-D [Concomitant]
     Indication: VITAMIN D DEFICIENCY
     Dosage: 2 TABLETS/DAY
     Dates: start: 20080724
  10. RENITEC [Concomitant]
     Dosage: 20 MG, QD

REACTIONS (21)
  - ALANINE AMINOTRANSFERASE INCREASED [None]
  - ANXIETY [None]
  - ATRIAL FLUTTER [None]
  - BLOOD CREATINE PHOSPHOKINASE INCREASED [None]
  - BLOOD LACTATE DEHYDROGENASE INCREASED [None]
  - CARDIAC DISORDER [None]
  - CONGESTIVE CARDIOMYOPATHY [None]
  - COUGH [None]
  - GINGIVAL INFECTION [None]
  - HEART VALVE INCOMPETENCE [None]
  - INFLUENZA [None]
  - MUSCLE NECROSIS [None]
  - MUSCLE SPASMS [None]
  - MUSCULAR WEAKNESS [None]
  - MYALGIA [None]
  - MYOPATHY [None]
  - POLYMYOSITIS [None]
  - SWELLING [None]
  - TOOTH EXTRACTION [None]
  - WEIGHT DECREASED [None]
  - WEIGHT INCREASED [None]
